FAERS Safety Report 12694048 (Version 2)
Quarter: 2016Q4

REPORT INFORMATION
  Report Type: Spontaneous
  Country: US (occurrence: US)
  Receive Date: 20160829
  Receipt Date: 20161024
  Transmission Date: 20170207
  Serious: No
  Sender: FDA-Public Use
  Company Number: US-JNJFOC-20160814039

PATIENT
  Age: 11 Year
  Sex: Male
  Weight: 45.36 kg

DRUGS (1)
  1. CONCERTA [Suspect]
     Active Substance: METHYLPHENIDATE HYDROCHLORIDE
     Indication: PRODUCT USED FOR UNKNOWN INDICATION
     Route: 048

REACTIONS (4)
  - Adverse event [Not Recovered/Not Resolved]
  - Inappropriate schedule of drug administration [Unknown]
  - Prescribed overdose [Unknown]
  - Off label use [Unknown]
